FAERS Safety Report 25452935 (Version 1)
Quarter: 2025Q2

REPORT INFORMATION
  Report Type: Report from Study
  Country: FR (occurrence: FR)
  Receive Date: 20250618
  Receipt Date: 20250618
  Transmission Date: 20250716
  Serious: Yes (Hospitalization)
  Sender: PFIZER
  Company Number: FR-PFM-2025-02872

PATIENT
  Age: 78 Year
  Sex: Female
  Weight: 46 kg

DRUGS (15)
  1. ENCORAFENIB [Suspect]
     Active Substance: ENCORAFENIB
     Indication: Metastatic malignant melanoma
     Route: 065
     Dates: start: 20240603, end: 20250520
  2. ENCORAFENIB [Suspect]
     Active Substance: ENCORAFENIB
     Indication: BRAF V600E mutation positive
     Route: 065
     Dates: start: 20250604
  3. BINIMETINIB [Suspect]
     Active Substance: BINIMETINIB
     Indication: Metastatic malignant melanoma
     Route: 065
     Dates: start: 20240603, end: 20250520
  4. BINIMETINIB [Suspect]
     Active Substance: BINIMETINIB
     Indication: BRAF V600E mutation positive
     Route: 065
     Dates: start: 20250604
  5. ACTONEL [Concomitant]
     Active Substance: RISEDRONATE SODIUM
     Indication: Osteoporosis
     Route: 065
     Dates: start: 1994
  6. HYALURONATE SODIUM\TREHALOSE [Concomitant]
     Active Substance: HYALURONATE SODIUM\TREHALOSE
     Indication: Glaucoma
     Route: 065
     Dates: start: 2014
  7. TIMOLOL MALEATE [Concomitant]
     Active Substance: TIMOLOL MALEATE
     Indication: Glaucoma
     Route: 065
     Dates: start: 2014
  8. LEVOTHYROXINE [Concomitant]
     Active Substance: LEVOTHYROXINE
     Indication: Hypothyroidism
     Route: 065
     Dates: start: 2019, end: 20250325
  9. TAHOR [Concomitant]
     Active Substance: ATORVASTATIN CALCIUM
     Indication: Hypercholesterolaemia
     Route: 065
     Dates: start: 2022
  10. BROMAZEPAM [Concomitant]
     Active Substance: BROMAZEPAM
     Indication: Anxiety
     Route: 065
     Dates: start: 20240430
  11. GYDRELLE [Concomitant]
     Indication: Vulvovaginal dryness
     Route: 065
     Dates: start: 20240703
  12. AMOXICILLIN [Concomitant]
     Active Substance: AMOXICILLIN
     Indication: Pyelonephritis
     Dosage: 500 MG, TID (3/DAY)
     Route: 065
     Dates: start: 20240703, end: 20240712
  13. METHOTREXATE [Concomitant]
     Active Substance: METHOTREXATE
     Indication: Rheumatoid arthritis
     Route: 065
     Dates: start: 20241008, end: 20250520
  14. PREDNISONE [Concomitant]
     Active Substance: PREDNISONE
     Indication: Rheumatoid arthritis
     Route: 065
     Dates: start: 20241008, end: 20241011
  15. PREDNISONE [Concomitant]
     Active Substance: PREDNISONE
     Route: 065
     Dates: start: 20241012, end: 20241017

REACTIONS (7)
  - Sepsis [Recovered/Resolved]
  - Nausea [Not Recovered/Not Resolved]
  - Decreased appetite [Not Recovered/Not Resolved]
  - Hypothyroidism [Not Recovered/Not Resolved]
  - Anaemia [Not Recovered/Not Resolved]
  - Diarrhoea [Recovered/Resolved]
  - Hyponatraemia [Recovered/Resolved]

NARRATIVE: CASE EVENT DATE: 20250226
